FAERS Safety Report 7537441 (Version 5)
Quarter: 2013Q3

REPORT INFORMATION
  Report Type: Spontaneous
  Country: US (occurrence: US)
  Receive Date: 20100811
  Receipt Date: 20130808
  Transmission Date: 20140515
  Serious: Yes (Death, Hospitalization, Other)
  Sender: FDA-Public Use
  Company Number: PHEH2010US03509

PATIENT
  Sex: Male

DRUGS (7)
  1. ZOMETA [Suspect]
     Indication: METASTASES TO BONE
     Dates: start: 200903, end: 200910
  2. ROBAXIN [Concomitant]
     Dosage: 750 MG, Q6H
     Route: 048
  3. PERCOCET [Concomitant]
     Route: 048
  4. AMBIEN [Concomitant]
     Dosage: 5 MG, QHS
     Route: 048
  5. ORUDIS [Concomitant]
     Dosage: 75 MG, Q8H
  6. ADVIL [Concomitant]
  7. NABUMETONE [Concomitant]
     Dosage: 500 MG, BID

REACTIONS (22)
  - Prostate cancer metastatic [Fatal]
  - Osteonecrosis of jaw [Unknown]
  - Pain [Unknown]
  - Infection [Unknown]
  - Deformity [Unknown]
  - Overdose [Unknown]
  - Partner stress [Unknown]
  - Carpal tunnel syndrome [Unknown]
  - Lumbar spinal stenosis [Unknown]
  - Bone cancer [Unknown]
  - Intervertebral disc degeneration [Unknown]
  - Back pain [Unknown]
  - Joint effusion [Unknown]
  - Pain in extremity [Unknown]
  - Cardiac murmur [Unknown]
  - Bronchitis [Unknown]
  - Dysphagia [Unknown]
  - Pain in jaw [Unknown]
  - Metastases to spine [Unknown]
  - Osteomyelitis [Unknown]
  - Osteosclerosis [Unknown]
  - Primary sequestrum [Unknown]
